FAERS Safety Report 5812121-7 (Version None)
Quarter: 2008Q3

REPORT INFORMATION
  Report Type: 
  Country: None (occurrence: None)
  Receive Date: 20080716
  Receipt Date: 20080710
  Transmission Date: 20090109
  Serious: Yes (Other)
  Sender: FDA-Public Use
  Company Number: US-WATSON-2008-04146

PATIENT
  Age: 50 Year
  Sex: Female

DRUGS (17)
  1. HYDROCODONE BITARTRATE AND ACETAMINOPHEN [Suspect]
     Indication: PAIN
     Dosage: 1 TABLET, Q4H, PRN
     Route: 048
     Dates: start: 19980101
  2. HYDROCODONE BITARTRATE AND ACETAMINOPHEN [Suspect]
     Dosage: 1 TABLET, Q4H PRN
  3. CYCLOBENZAPRINE HCL [Suspect]
     Indication: DRUG USE FOR UNKNOWN INDICATION
     Dosage: UNK
     Route: 048
     Dates: start: 20080707
  4. EPIPEN                             /00003901/ [Suspect]
     Indication: ANAPHYLAXIS TREATMENT
     Dosage: 1 UNK, SINGLE
     Dates: start: 20080707, end: 20080707
  5. KLONOPIN [Concomitant]
     Indication: DRUG USE FOR UNKNOWN INDICATION
     Dosage: 7.5 MG, DAILY
     Route: 065
  6. SEROQUEL [Concomitant]
     Indication: DRUG USE FOR UNKNOWN INDICATION
     Dosage: 8 PILLS, DAILY
     Route: 065
  7. DEPAKOTE [Concomitant]
     Indication: DRUG USE FOR UNKNOWN INDICATION
     Dosage: 5 PILLS DAILY
     Route: 065
  8. VALTREX [Concomitant]
     Indication: DRUG USE FOR UNKNOWN INDICATION
     Dosage: 2 /DAILY
     Route: 065
  9. ORTHO TRI-CYCLEN [Concomitant]
     Indication: HORMONE LEVEL ABNORMAL
     Dosage: 1, DAILY
     Route: 065
  10. SYNTHROID [Concomitant]
     Indication: AUTOIMMUNE THYROIDITIS
     Dosage: .075 MG, DAILY
     Route: 065
  11. ASPIRIN [Concomitant]
     Indication: MYOCARDIAL ISCHAEMIA
     Dosage: 1, DAILY
     Route: 065
  12. ASPIRIN [Concomitant]
     Dosage: 325 MG, DAILY
     Route: 065
  13. COLACE [Concomitant]
     Indication: CONSTIPATION
     Dosage: UNK
     Route: 065
  14. VITAMIN B-12 [Concomitant]
     Indication: PERNICIOUS ANAEMIA
     Dosage: 1 SHOT MONTHLY
     Route: 065
  15. TORADOL [Concomitant]
     Indication: PAIN
     Dosage: PRN PAIN
     Route: 065
  16. TUMS                               /00108001/ [Concomitant]
     Indication: GASTROOESOPHAGEAL REFLUX DISEASE
     Dosage: UNK
     Route: 065
  17. CENTRUM SILVER                     /01292501/ [Concomitant]
     Indication: SUPPLEMENTATION THERAPY
     Dosage: UNK
     Route: 065

REACTIONS (6)
  - ANAPHYLACTIC REACTION [None]
  - CHEST DISCOMFORT [None]
  - DRUG INEFFECTIVE [None]
  - RESPIRATORY RATE DECREASED [None]
  - SWELLING FACE [None]
  - TREMOR [None]
